FAERS Safety Report 10260106 (Version 1)
Quarter: 2014Q2

REPORT INFORMATION
  Report Type: Spontaneous
  Country: US (occurrence: US)
  Receive Date: 20140625
  Receipt Date: 20140625
  Transmission Date: 20141212
  Serious: No
  Sender: FDA-Public Use
  Company Number: US-GALDERMA-US13003684

PATIENT
  Sex: Female

DRUGS (3)
  1. DIFFERIN (ADAPALENE) CREAM, 0.1% [Suspect]
     Indication: ACNE
     Route: 061
     Dates: start: 201309, end: 20131027
  2. CETAPHIL DAILY FACIAL CLEANSER [Suspect]
     Indication: THERAPEUTIC SKIN CARE TOPICAL
     Route: 061
     Dates: start: 201309
  3. NEUTROGEN VISIBLY EVEN MOISTURIZER WITH SPF [Concomitant]
     Indication: DRY SKIN PROPHYLAXIS
     Route: 061
     Dates: start: 2004, end: 20131110

REACTIONS (2)
  - Acne [Recovering/Resolving]
  - Drug ineffective [Recovering/Resolving]
